FAERS Safety Report 9337043 (Version 1)
Quarter: 2013Q2

REPORT INFORMATION
  Report Type: Spontaneous
  Country: US (occurrence: US)
  Receive Date: 20130607
  Receipt Date: 20130607
  Transmission Date: 20140414
  Serious: Yes (Other)
  Sender: FDA-Public Use
  Company Number: US-PFIZER INC-2013171980

PATIENT
  Age: 26 Year
  Sex: Female
  Weight: 65.76 kg

DRUGS (4)
  1. PRISTIQ [Suspect]
     Indication: ANXIETY
     Dosage: 50 MG, 1X/DAY
     Route: 048
     Dates: start: 20130528
  2. PRISTIQ [Suspect]
     Indication: DEPRESSION
  3. MIRTAZAPINE [Concomitant]
     Dosage: 30 MG, UNK
  4. CLONAZEPAM [Concomitant]
     Indication: ANXIETY
     Dosage: 0.5 MG, UNK

REACTIONS (4)
  - Mental impairment [Unknown]
  - Abnormal behaviour [Unknown]
  - Decreased appetite [Unknown]
  - Off label use [Unknown]
